FAERS Safety Report 7517010-8 (Version None)
Quarter: 2011Q2

REPORT INFORMATION
  Report Type: 
  Country: None (occurrence: None)
  Receive Date: 20110601
  Receipt Date: 20110525
  Transmission Date: 20111010
  Serious: Yes (Hospitalization)
  Sender: FDA-Public Use
  Company Number: US-ALEXION-A201100306

PATIENT
  Sex: Female
  Weight: 89 kg

DRUGS (4)
  1. LOVENOX [Concomitant]
  2. SOLIRIS [Suspect]
     Indication: PAROXYSMAL NOCTURNAL HAEMOGLOBINURIA
     Dosage: 900 MG, Q2W
     Route: 042
     Dates: start: 20090226
  3. FOLIC ACID [Concomitant]
     Indication: ANAEMIA
     Dosage: 1 MG, QD
     Route: 048
     Dates: start: 20080201
  4. FERROUS SULFATE TAB [Concomitant]
     Dosage: 1 MG, QD
     Route: 048
     Dates: start: 20101001

REACTIONS (9)
  - ABDOMINAL PAIN [None]
  - THROMBOCYTOPENIA [None]
  - ANAEMIA [None]
  - PAIN [None]
  - CHOLELITHIASIS [None]
  - TRANSFUSION [None]
  - NASAL CONGESTION [None]
  - HAEMOLYTIC ANAEMIA [None]
  - CHROMATURIA [None]
